FAERS Safety Report 5006478-7 (Version None)
Quarter: 2006Q2

REPORT INFORMATION
  Report Type: 
  Country: None (occurrence: None)
  Receive Date: 20060519
  Receipt Date: 20060511
  Transmission Date: 20061013
  Serious: Yes (Other)
  Sender: FDA-Public Use
  Company Number: AU-AVENTIS-200615138GDDC

PATIENT
  Age: 37 Year
  Sex: Female

DRUGS (4)
  1. ARAVA [Suspect]
     Indication: RHEUMATOID ARTHRITIS
     Route: 048
     Dates: start: 20021024
  2. METHOTREXATE [Concomitant]
     Dosage: DOSE: UNK
  3. CORTICOSTEROIDS [Concomitant]
     Dosage: DOSE: UNK
  4. PARACETAMOL [Concomitant]
     Dosage: DOSE: UNK

REACTIONS (1)
  - CEREBROVASCULAR ACCIDENT [None]
